FAERS Safety Report 8442900-1 (Version None)
Quarter: 2012Q2

REPORT INFORMATION
  Report Type: 
  Country: None (occurrence: None)
  Receive Date: 20120615
  Receipt Date: 20120604
  Transmission Date: 20120825
  Serious: No
  Sender: FDA-Public Use
  Company Number: US-ASTRAZENECA-2012SE37198

PATIENT
  Age: 45 Year
  Sex: Male
  Weight: 95.3 kg

DRUGS (20)
  1. SEROQUEL XR [Suspect]
     Indication: POST-TRAUMATIC STRESS DISORDER
     Route: 048
  2. SEROQUEL XR [Suspect]
     Route: 048
  3. SEROQUEL XR [Suspect]
     Route: 048
  4. CELEXA [Concomitant]
     Indication: OBSESSIVE-COMPULSIVE DISORDER
  5. CLONOPIN [Concomitant]
     Indication: POST-TRAUMATIC STRESS DISORDER
  6. SEROQUEL XR [Suspect]
     Route: 048
  7. SEROQUEL XR [Suspect]
     Route: 048
  8. CLONOPIN [Concomitant]
     Indication: OBSESSIVE-COMPULSIVE DISORDER
  9. SEROQUEL XR [Suspect]
     Indication: BIPOLAR DISORDER
     Route: 048
  10. CLONOPIN [Concomitant]
     Indication: BIPOLAR DISORDER
  11. SEROQUEL XR [Suspect]
     Indication: MAJOR DEPRESSION
     Route: 048
  12. SEROQUEL XR [Suspect]
     Route: 048
  13. SEROQUEL XR [Suspect]
     Route: 048
  14. SEROQUEL XR [Suspect]
     Indication: OBSESSIVE-COMPULSIVE DISORDER
     Route: 048
  15. SEROQUEL XR [Suspect]
     Route: 048
  16. SEROQUEL XR [Suspect]
     Route: 048
  17. SEROQUEL XR [Suspect]
     Route: 048
  18. SEROQUEL XR [Suspect]
     Route: 048
  19. SEROQUEL XR [Suspect]
     Route: 048
  20. SEROQUEL XR [Suspect]
     Route: 048

REACTIONS (5)
  - ACTIVITIES OF DAILY LIVING IMPAIRED [None]
  - TACHYPHRENIA [None]
  - SOLILOQUY [None]
  - INSOMNIA [None]
  - DRUG DOSE OMISSION [None]
